FAERS Safety Report 9536287 (Version 2)
Quarter: 2013Q4

REPORT INFORMATION
  Report Type: Spontaneous
  Country: NZ (occurrence: NZ)
  Receive Date: 20130919
  Receipt Date: 20131021
  Transmission Date: 20140711
  Serious: Yes (Hospitalization)
  Sender: FDA-Public Use
  Company Number: NZ-JNJFOC-20130909924

PATIENT
  Age: 64 Year
  Sex: Female

DRUGS (16)
  1. REMICADE [Suspect]
     Indication: CROHN^S DISEASE
     Route: 042
     Dates: start: 20130827
  2. REMICADE [Suspect]
     Indication: CROHN^S DISEASE
     Route: 042
     Dates: start: 20130703
  3. METFORMIN [Concomitant]
     Route: 065
  4. INSULIN [Concomitant]
     Route: 065
  5. CILAZAPRIL [Concomitant]
     Route: 065
  6. LEVOTHYROXINE [Concomitant]
     Route: 065
  7. AMITRIPTYLINE [Concomitant]
     Route: 065
  8. AMLODIPINE [Concomitant]
     Route: 065
  9. BUDESONIDE [Concomitant]
     Route: 065
  10. SIMVASTATIN [Concomitant]
     Route: 065
  11. PENTASA [Concomitant]
     Route: 065
  12. LORATADINE [Concomitant]
     Route: 065
  13. LAXSOL [Concomitant]
     Route: 065
  14. KONSYL [Concomitant]
     Route: 065
  15. TRAMADOL [Concomitant]
     Route: 065
  16. HYDROCORTISONE [Concomitant]
     Route: 065

REACTIONS (6)
  - Pain in jaw [Recovered/Resolved]
  - Angioedema [Recovered/Resolved]
  - Headache [Recovered/Resolved]
  - Rash [Recovered/Resolved]
  - Face oedema [Recovered/Resolved]
  - Hypotension [Recovered/Resolved]
